FAERS Safety Report 9330619 (Version 3)
Quarter: 2013Q4

REPORT INFORMATION
  Report Type: Spontaneous
  Country: US (occurrence: US)
  Receive Date: 20130605
  Receipt Date: 20131122
  Transmission Date: 20140711
  Serious: Yes (Hospitalization)
  Sender: FDA-Public Use
  Company Number: US-B.I. PHARMACEUTICALS,INC./RIDGEFIELD-2013-BI-15629BP

PATIENT
  Sex: Female
  Weight: 79.38 kg

DRUGS (22)
  1. PRADAXA [Suspect]
     Indication: ANTICOAGULANT THERAPY
     Dosage: 300 MG
     Route: 048
     Dates: start: 20101210, end: 20120404
  2. PRADAXA [Suspect]
     Indication: ATRIAL FIBRILLATION
  3. AMITRIPTYLINE [Concomitant]
     Dates: start: 2006
  4. BYETTA [Concomitant]
     Dosage: 20 MG
     Dates: start: 2009
  5. CELEBREX [Concomitant]
     Dates: start: 2007
  6. CITALOPRAM [Concomitant]
     Dates: start: 2007
  7. DIOVAN [Concomitant]
     Route: 048
     Dates: start: 2006
  8. FUROSEMIDE [Concomitant]
     Indication: CARDIAC FAILURE CONGESTIVE
     Dosage: 60 MG
     Dates: start: 2006
  9. METFORMIN [Concomitant]
     Dosage: 2000 MG
     Dates: start: 2006
  10. METOPROLOL ER [Concomitant]
     Route: 048
     Dates: start: 2006
  11. SIMVASTATIN [Concomitant]
     Indication: HYPERLIPIDAEMIA
     Route: 048
     Dates: start: 2008
  12. TEMAZEPAM [Concomitant]
     Dosage: 30 MG
     Route: 048
     Dates: start: 2011
  13. VITAMIN D [Concomitant]
     Indication: VITAMIN D DEFICIENCY
     Dates: start: 2011
  14. VYTORIN [Concomitant]
     Dates: start: 2006
  15. PERCOCET [Concomitant]
  16. FERROUS GLUCONATE [Concomitant]
     Indication: ANAEMIA
     Dosage: 325 MG
     Route: 048
  17. DOCUSATE [Concomitant]
     Dosage: 100 MG
  18. SLOW-MAG [Concomitant]
     Indication: BLOOD MAGNESIUM DECREASED
     Dosage: 256 MG
     Route: 048
  19. K-DUR [Concomitant]
     Dosage: 40 MEQ
  20. MIRAPEX [Concomitant]
     Dosage: 1 MG
  21. EFFEXOR XR [Concomitant]
     Dosage: 150 MG
     Route: 048
  22. ASPIRIN [Concomitant]

REACTIONS (2)
  - Gastrointestinal haemorrhage [Unknown]
  - Haemorrhagic anaemia [Unknown]
